FAERS Safety Report 20622105 (Version 1)
Quarter: 2022Q1

REPORT INFORMATION
  Report Type: Spontaneous
  Country: CO (occurrence: CO)
  Receive Date: 20220322
  Receipt Date: 20220322
  Transmission Date: 20220424
  Serious: Yes (Other)
  Sender: FDA-Public Use
  Company Number: CO-PFIZER INC-202200394334

PATIENT
  Sex: Female

DRUGS (1)
  1. PALBOCICLIB [Suspect]
     Active Substance: PALBOCICLIB
     Dosage: 125 MG, TAKE FOR 21 DAYS AND REST FOR 8 DAYS
     Route: 048

REACTIONS (2)
  - Second primary malignancy [Unknown]
  - Neoplasm malignant [Unknown]
